FAERS Safety Report 10221042 (Version 2)
Quarter: 2014Q2

REPORT INFORMATION
  Report Type: Spontaneous
  Country: US (occurrence: US)
  Receive Date: 20140606
  Receipt Date: 20140606
  Transmission Date: 20141212
  Serious: No
  Sender: FDA-Public Use
  Company Number: US-ASTRAZENECA-2011SE73510

PATIENT
  Age: 508 Month
  Sex: Female
  Weight: 83.9 kg

DRUGS (1)
  1. NEXIUM [Suspect]
     Indication: GASTROOESOPHAGEAL REFLUX DISEASE
     Route: 048
     Dates: start: 200904, end: 201404

REACTIONS (4)
  - Gastrooesophageal reflux disease [Unknown]
  - Aphagia [Unknown]
  - Malaise [Unknown]
  - Drug dose omission [Unknown]
